FAERS Safety Report 25214641 (Version 1)
Quarter: 2025Q2

REPORT INFORMATION
  Report Type: Other
  Country: US (occurrence: US)
  Receive Date: 20250418
  Receipt Date: 20250418
  Transmission Date: 20250717
  Serious: Yes (Other)
  Sender: EMD SERONO INC
  Company Number: US-Merck Healthcare KGaA-2025019359

PATIENT
  Age: 63 Year
  Sex: Female

DRUGS (3)
  1. TEPOTINIB [Suspect]
     Active Substance: TEPOTINIB
     Indication: Non-small cell lung cancer metastatic
     Dates: start: 202109
  2. OSIMERTINIB [Suspect]
     Active Substance: OSIMERTINIB
     Indication: Non-small cell lung cancer metastatic
     Dates: start: 202003
  3. OSIMERTINIB [Suspect]
     Active Substance: OSIMERTINIB
     Dates: start: 202109

REACTIONS (3)
  - Colitis [Unknown]
  - Pneumonitis [Unknown]
  - Off label use [Unknown]
